FAERS Safety Report 17732551 (Version 5)
Quarter: 2023Q4

REPORT INFORMATION
  Report Type: Spontaneous
  Country: US (occurrence: None)
  Receive Date: 20200501
  Receipt Date: 20231008
  Transmission Date: 20240109
  Serious: Yes (Death, Hospitalization, Other)
  Sender: FDA-Public Use
  Company Number: 2020SE56571

PATIENT
  Age: 64 Year
  Sex: Female
  Weight: 97.2 kg

DRUGS (63)
  1. PRILOSEC [Suspect]
     Active Substance: OMEPRAZOLE MAGNESIUM
     Indication: Gastrooesophageal reflux disease
     Route: 048
     Dates: start: 200901, end: 201512
  2. PRILOSEC [Suspect]
     Active Substance: OMEPRAZOLE MAGNESIUM
     Indication: Gastrooesophageal reflux disease
     Route: 048
     Dates: start: 2009, end: 2015
  3. PRILOSEC [Suspect]
     Active Substance: OMEPRAZOLE MAGNESIUM
     Indication: Gastrooesophageal reflux disease
     Dosage: GENERIC
     Dates: end: 2016
  4. PRILOSEC [Suspect]
     Active Substance: OMEPRAZOLE MAGNESIUM
     Indication: Gastrooesophageal reflux disease
     Dosage: GENERIC
     Dates: start: 2008, end: 2016
  5. PRILOSEC OTC [Suspect]
     Active Substance: OMEPRAZOLE MAGNESIUM
     Indication: Gastrooesophageal reflux disease
     Dosage: DOSAGE AS NEEDED.
     Route: 048
     Dates: start: 2007, end: 2019
  6. DEXILANT [Suspect]
     Active Substance: DEXLANSOPRAZOLE
     Indication: Gastrooesophageal reflux disease
     Dates: start: 2009, end: 2015
  7. PROTONIX [Suspect]
     Active Substance: PANTOPRAZOLE SODIUM
     Indication: Gastrooesophageal reflux disease
     Dates: start: 200901, end: 201512
  8. PROTONIX [Suspect]
     Active Substance: PANTOPRAZOLE SODIUM
     Indication: Gastrooesophageal reflux disease
     Dates: start: 2009, end: 2015
  9. PROTONIX [Suspect]
     Active Substance: PANTOPRAZOLE SODIUM
     Indication: Gastrooesophageal reflux disease
     Dosage: GENERIC
     Dates: end: 2017
  10. PROTONIX [Suspect]
     Active Substance: PANTOPRAZOLE SODIUM
     Indication: Gastrooesophageal reflux disease
     Dosage: GENERIC
     Dates: start: 2013, end: 2017
  11. LEVAQUIN [Concomitant]
     Active Substance: LEVOFLOXACIN
     Indication: Infection
     Dates: start: 2010
  12. LISINOPRIL [Concomitant]
     Active Substance: LISINOPRIL
     Indication: Hypertension
     Dates: start: 2008, end: 2017
  13. PRAVASTATIN [Concomitant]
     Active Substance: PRAVASTATIN
     Indication: Blood cholesterol increased
     Dates: start: 2010
  14. AZITHROMYCIN [Concomitant]
     Active Substance: AZITHROMYCIN
     Indication: Infection
     Dates: start: 2011
  15. BUPIVACAINE HYDROCHLORIDE/LIDOCAINE HYDROCHLORIDE/KETOROLAC TROMETHAMI [Concomitant]
     Indication: Pain
     Dates: start: 2011
  16. ATORVASTATIN [Concomitant]
     Active Substance: ATORVASTATIN
     Indication: Blood cholesterol increased
     Dates: start: 2013
  17. FUROSEMIDE [Concomitant]
     Active Substance: FUROSEMIDE
     Indication: Hypertension
     Dates: start: 2008, end: 2017
  18. SIMVASTATIN [Concomitant]
     Active Substance: SIMVASTATIN
     Indication: Blood cholesterol increased
     Dates: start: 2015, end: 2017
  19. HYDROCHLOROTHIAZIDE [Concomitant]
     Active Substance: HYDROCHLOROTHIAZIDE
     Indication: Oedema
     Dates: start: 2014, end: 2015
  20. LOSARTAN [Concomitant]
     Active Substance: LOSARTAN
     Indication: Renal disorder
     Dates: start: 2017, end: 2019
  21. CLINDAMYCIN [Concomitant]
     Active Substance: CLINDAMYCIN
  22. SYMBICORT [Concomitant]
     Active Substance: BUDESONIDE\FORMOTEROL FUMARATE DIHYDRATE
  23. ISOSORBIDE [Concomitant]
     Active Substance: ISOSORBIDE
  24. GLIMEPIRIDE [Concomitant]
     Active Substance: GLIMEPIRIDE
  25. BUMETANIDE [Concomitant]
     Active Substance: BUMETANIDE
     Indication: Drug abuse
     Dates: start: 2010
  26. NASTURTIUM OFFICINALE/SODIUM SULFATE/MYOSOTIS ARVENSIS/GERANIUM ROBERT [Concomitant]
  27. KLOR-CON [Concomitant]
     Active Substance: POTASSIUM CHLORIDE
  28. CITALOPRAM [Concomitant]
     Active Substance: CITALOPRAM HYDROBROMIDE
  29. FLUTICASONE [Concomitant]
     Active Substance: FLUTICASONE
  30. FERROUS GLUCONATE [Concomitant]
     Active Substance: FERROUS GLUCONATE
  31. NOVOLIN NOS [Concomitant]
     Active Substance: INSULIN HUMAN
  32. HIGH DENSITY POLYETHYLENE [Concomitant]
     Active Substance: HIGH DENSITY POLYETHYLENE
  33. SYMLINPEN [Concomitant]
     Active Substance: PRAMLINTIDE ACETATE
  34. LANTUS [Concomitant]
     Active Substance: INSULIN GLARGINE
  35. PREDNISOLONE [Concomitant]
     Active Substance: PREDNISOLONE
  36. TRIAMCINOLONE [Concomitant]
     Active Substance: TRIAMCINOLONE
  37. VENLAFAXINE [Concomitant]
     Active Substance: VENLAFAXINE HYDROCHLORIDE
  38. ROPINIROLE [Concomitant]
     Active Substance: ROPINIROLE
  39. ALEVE [Concomitant]
     Active Substance: NAPROXEN SODIUM
  40. HYDRALAZINE HYDROCHLORIDE [Concomitant]
     Active Substance: HYDRALAZINE HYDROCHLORIDE
  41. HUMALOG [Concomitant]
     Active Substance: INSULIN LISPRO
  42. TETRACYCLINE HYDROCHLORIDE [Concomitant]
     Active Substance: TETRACYCLINE HYDROCHLORIDE
  43. CLOPIDOGREL [Concomitant]
     Active Substance: CLOPIDOGREL BISULFATE
  44. ISOSORBIDE MONONITRATE [Concomitant]
     Active Substance: ISOSORBIDE MONONITRATE
  45. VICTOZA [Concomitant]
     Active Substance: LIRAGLUTIDE
  46. METOPROLOL TARTRATE [Concomitant]
     Active Substance: METOPROLOL TARTRATE
  47. CEPHALEXIN [Concomitant]
     Active Substance: CEPHALEXIN
  48. GABAPENTIN [Concomitant]
     Active Substance: GABAPENTIN
  49. FLOVENT HFA [Concomitant]
     Active Substance: FLUTICASONE PROPIONATE
  50. CARVEDILOL [Concomitant]
     Active Substance: CARVEDILOL
  51. VENLAFAXINE HYDROCHLORIDE [Concomitant]
     Active Substance: VENLAFAXINE HYDROCHLORIDE
  52. FERROUS SULFATE [Concomitant]
     Active Substance: FERROUS SULFATE
  53. PRAMIPEXOLE [Concomitant]
     Active Substance: PRAMIPEXOLE
  54. CALCIUM CARBONATE\ERGOCALCIFEROL\RETINOL [Concomitant]
     Active Substance: CALCIUM CARBONATE\ERGOCALCIFEROL\RETINOL
  55. ADVAIR HFA [Concomitant]
     Active Substance: FLUTICASONE PROPIONATE\SALMETEROL XINAFOATE
  56. TYLENOL [Concomitant]
     Active Substance: ACETAMINOPHEN
     Indication: Pain
     Dosage: AS NEEDED.
  57. CIMETIDINE [Concomitant]
     Active Substance: CIMETIDINE
  58. FAMOTIDINE [Concomitant]
     Active Substance: FAMOTIDINE
  59. ZANTAC [Concomitant]
     Active Substance: RANITIDINE HYDROCHLORIDE
  60. TUMS [Concomitant]
     Active Substance: CALCIUM CARBONATE
  61. NOVOLOG [Concomitant]
     Active Substance: INSULIN ASPART
  62. ONDANSETRON [Concomitant]
     Active Substance: ONDANSETRON
  63. ELIQUIS [Concomitant]
     Active Substance: APIXABAN

REACTIONS (5)
  - Cardiac arrest [Fatal]
  - Chronic kidney disease [Not Recovered/Not Resolved]
  - Acute kidney injury [Not Recovered/Not Resolved]
  - End stage renal disease [Unknown]
  - Renal failure [Unknown]

NARRATIVE: CASE EVENT DATE: 20130101
